FAERS Safety Report 9452195 (Version 2)
Quarter: 2013Q3

REPORT INFORMATION
  Report Type: Spontaneous
  Country: US (occurrence: US)
  Receive Date: 20130812
  Receipt Date: 20130826
  Transmission Date: 20140515
  Serious: No
  Sender: FDA-Public Use
  Company Number: US-009507513-1308USA001535

PATIENT
  Age: 80 Year
  Sex: Female

DRUGS (3)
  1. AZASITE [Suspect]
     Indication: CONJUNCTIVITIS
     Dosage: 1 DROP EACH EYE/ONCE DAILY FOR 5 DAYS
     Route: 031
     Dates: start: 20130701
  2. AZASITE [Suspect]
     Dosage: 1 DROP EACH EYE/ONCE DAILY FOR 5 DAYS
     Route: 031
     Dates: start: 20130718, end: 20130723
  3. AZASITE [Suspect]
     Dosage: 1 DROP EACH EYE/ONCE DAILY FOR 5 DAYS
     Route: 031
     Dates: start: 2013

REACTIONS (2)
  - Conjunctivitis [Recovered/Resolved]
  - Drug hypersensitivity [Unknown]
